FAERS Safety Report 6104976-6 (Version None)
Quarter: 2009Q1

REPORT INFORMATION
  Report Type: 
  Country: None (occurrence: None)
  Receive Date: 20090304
  Receipt Date: 20090304
  Transmission Date: 20090719
  Serious: Yes (Hospitalization)
  Sender: FDA-Public Use
  Company Number: None

PATIENT
  Age: 55 Year
  Sex: Male
  Weight: 89.2 kg

DRUGS (2)
  1. IRINOTECAN HCL [Suspect]
     Indication: COLORECTAL CANCER METASTATIC
     Dosage: 240 MG OTHER IV
     Route: 042
     Dates: start: 20081103, end: 20090209
  2. IRINOTECAN HCL [Suspect]
     Indication: PALLIATIVE CARE
     Dosage: 240 MG OTHER IV
     Route: 042
     Dates: start: 20081103, end: 20090209

REACTIONS (1)
  - PANCREATITIS ACUTE [None]
